FAERS Safety Report 7880789-X (Version None)
Quarter: 2011Q4

REPORT INFORMATION
  Report Type: 
  Country: None (occurrence: None)
  Receive Date: 20111101
  Receipt Date: 20111021
  Transmission Date: 20120403
  Serious: Yes (Other)
  Sender: FDA-Public Use
  Company Number: PHHY2011MX93886

PATIENT
  Sex: Male

DRUGS (2)
  1. EXFORGE [Suspect]
     Indication: HYPERTENSION
     Dosage: 1 DF(160/5 MG), PER DAY
     Dates: start: 20110401
  2. EXFORGE [Suspect]
     Dosage: 1 DF(160/10 MG), PER DAY
     Dates: start: 20111001

REACTIONS (2)
  - DIABETES MELLITUS [None]
  - HYPERTENSION [None]
